FAERS Safety Report 4610995-9 (Version None)
Quarter: 2005Q1

REPORT INFORMATION
  Report Type: 
  Country: None (occurrence: None)
  Receive Date: 20050317
  Receipt Date: 20040304
  Transmission Date: 20050727
  Serious: Yes (Hospitalization)
  Sender: FDA-Public Use
  Company Number: JP-NOVOPROD-242769

PATIENT
  Age: 43 Year
  Sex: Female
  Weight: 50 kg

DRUGS (1)
  1. NOVOLIN N [Suspect]
     Indication: SUICIDE ATTEMPT
     Dosage: 300 IU, UNK
     Dates: start: 20041008, end: 20041008

REACTIONS (12)
  - BLOOD CATECHOLAMINES INCREASED [None]
  - BLOOD CREATINE PHOSPHOKINASE INCREASED [None]
  - BLOOD CREATINE PHOSPHOKINASE MB INCREASED [None]
  - CARDIOMYOPATHY [None]
  - EJECTION FRACTION DECREASED [None]
  - ELECTROCARDIOGRAM T WAVE INVERSION [None]
  - HYPOGLYCAEMIC COMA [None]
  - INTENTIONAL MISUSE [None]
  - INTRACARDIAC THROMBUS [None]
  - SUICIDE ATTEMPT [None]
  - TROPONIN I INCREASED [None]
  - VENTRICULAR DYSKINESIA [None]
